FAERS Safety Report 7308690-0 (Version None)
Quarter: 2011Q1

REPORT INFORMATION
  Report Type: 
  Country: None (occurrence: None)
  Receive Date: 20110223
  Receipt Date: 20110209
  Transmission Date: 20110831
  Serious: Yes (Other)
  Sender: FDA-Public Use
  Company Number: PHHY2011CA10664

PATIENT
  Sex: Male

DRUGS (2)
  1. PRADAXA [Concomitant]
     Dosage: 150 MG, BID
     Dates: start: 20110112
  2. SANDOSTATIN LAR [Suspect]
     Indication: CARCINOID SYNDROME
     Dosage: 30 MG, QMO
     Route: 030
     Dates: start: 20101126

REACTIONS (2)
  - DIARRHOEA [None]
  - TACHYCARDIA [None]
